FAERS Safety Report 8848260 (Version 1)
Quarter: 2012Q4

REPORT INFORMATION
  Report Type: 
  Country: US (occurrence: US)
  Receive Date: 20121018
  Receipt Date: 20121018
  Transmission Date: 20130627
  Serious: Yes (Other)
  Sender: FDA-Public Use
  Company Number: US-ROCHE-1139616

PATIENT
  Sex: Male

DRUGS (3)
  1. PROTROPIN [Suspect]
     Indication: HYPOPITUITARISM
     Route: 058
     Dates: start: 19921008
  2. SYNTHROID [Concomitant]
     Route: 048
  3. CORTEF [Concomitant]
     Route: 048

REACTIONS (2)
  - Enuresis [Unknown]
  - Varicella [Unknown]
